FAERS Safety Report 6165579-0 (Version None)
Quarter: 2009Q2

REPORT INFORMATION
  Report Type: 
  Country: None (occurrence: None)
  Receive Date: 20090423
  Receipt Date: 20090303
  Transmission Date: 20091009
  Serious: Yes (Life-Threatening, Hospitalization)
  Sender: FDA-Public Use
  Company Number: BE-JNJFOC-20090204518

PATIENT
  Sex: Female
  Weight: 85 kg

DRUGS (11)
  1. DOXORUBICIN HCL [Suspect]
     Indication: BREAST CANCER
     Route: 042
  2. CLEXANE [Concomitant]
     Route: 065
  3. ACTRAPID [Concomitant]
     Route: 065
  4. KREDEX [Concomitant]
     Route: 065
  5. ZANTAC [Concomitant]
     Route: 065
  6. ZOLPIDEM [Concomitant]
     Route: 065
  7. DUOVENT [Concomitant]
     Route: 065
  8. GLUCOVANCE [Concomitant]
     Route: 065
  9. AMARYL [Concomitant]
     Route: 065
  10. EMCORETIC [Concomitant]
     Route: 065
  11. MIXTARD HUMAN 70/30 [Concomitant]
     Route: 065

REACTIONS (3)
  - ELECTROCARDIOGRAM QT PROLONGED [None]
  - HYPOKALAEMIA [None]
  - VENTRICULAR FIBRILLATION [None]
